FAERS Safety Report 6241775-9 (Version None)
Quarter: 2009Q2

REPORT INFORMATION
  Report Type: 
  Country: None (occurrence: None)
  Receive Date: 20090623
  Receipt Date: 20090617
  Transmission Date: 20091009
  Serious: Yes (Other)
  Sender: FDA-Public Use
  Company Number: AT-ABBOTT-09P-009-0580104-00

PATIENT
  Age: 14 Year
  Sex: Male

DRUGS (2)
  1. KLACID UNO MODIFIED RELEASE [Suspect]
     Indication: ACUTE TONSILLITIS
     Route: 048
     Dates: start: 20090527, end: 20090527
  2. MEXALEN [Concomitant]
     Indication: ACUTE TONSILLITIS

REACTIONS (2)
  - CONFUSIONAL STATE [None]
  - RETROGRADE AMNESIA [None]
